FAERS Safety Report 12960975 (Version 1)
Quarter: 2016Q4

REPORT INFORMATION
  Report Type: Spontaneous
  Country: US (occurrence: US)
  Receive Date: 20161121
  Receipt Date: 20161121
  Transmission Date: 20170207
  Serious: No
  Sender: FDA-Public Use
  Company Number: US-UPSHER-SMITH LABORATORIES, INC.-16000670

PATIENT
  Age: 61 Year
  Sex: Male

DRUGS (4)
  1. JANTOVEN [Suspect]
     Active Substance: WARFARIN SODIUM
     Indication: HEART VALVE REPLACEMENT
     Dosage: 7.5 MG, QD
     Route: 048
     Dates: start: 201604, end: 201604
  2. WARFARIN SODIUM. [Suspect]
     Active Substance: WARFARIN SODIUM
     Indication: HEART VALVE REPLACEMENT
     Dosage: 7.5 MG, QD
     Route: 048
     Dates: start: 2006, end: 201604
  3. WARFARIN SODIUM. [Suspect]
     Active Substance: WARFARIN SODIUM
     Indication: THROMBOSIS PROPHYLAXIS
  4. JANTOVEN [Suspect]
     Active Substance: WARFARIN SODIUM
     Indication: THROMBOSIS PROPHYLAXIS

REACTIONS (3)
  - Hypertension [Recovered/Resolved]
  - Ear haemorrhage [Recovered/Resolved]
  - Headache [Recovered/Resolved]

NARRATIVE: CASE EVENT DATE: 201604
